FAERS Safety Report 9363808 (Version 1)
Quarter: 2013Q2

REPORT INFORMATION
  Report Type: Report from Study
  Country: US (occurrence: US)
  Receive Date: 20130624
  Receipt Date: 20130624
  Transmission Date: 20140414
  Serious: Yes (Hospitalization)
  Sender: FDA-Public Use
  Company Number: US-MYLANLABS-2013S1012984

PATIENT
  Age: 59 Year
  Sex: Female

DRUGS (4)
  1. GABAPENTIN [Suspect]
     Indication: DRUG ABUSE
     Route: 065
  2. METHADONE [Suspect]
     Indication: DRUG ABUSE
     Route: 065
  3. TRAMADOL [Suspect]
     Indication: DRUG ABUSE
     Route: 065
  4. SERTRALINE [Suspect]
     Route: 065

REACTIONS (7)
  - Serotonin syndrome [Unknown]
  - Myoclonus [Unknown]
  - Convulsion [Unknown]
  - Blood creatine phosphokinase increased [Unknown]
  - Tachycardia [Unknown]
  - Drug abuse [Unknown]
  - Drug abuse [Unknown]
